FAERS Safety Report 20281914 (Version 2)
Quarter: 2022Q1

REPORT INFORMATION
  Report Type: Spontaneous
  Country: US (occurrence: US)
  Receive Date: 20220103
  Receipt Date: 20220114
  Transmission Date: 20220423
  Serious: No
  Sender: FDA-Public Use
  Company Number: US-SANOFI-00913948

PATIENT
  Sex: Male

DRUGS (1)
  1. LANTUS [Suspect]
     Active Substance: INSULIN GLARGINE
     Dosage: DRUG STRUCTURE DOSAGE : NOT OBTAINED DRUG INTERVAL DOSAGE : NOT OBTAINED

REACTIONS (1)
  - Therapeutic product effect variable [Unknown]
